FAERS Safety Report 25117273 (Version 1)
Quarter: 2025Q1

REPORT INFORMATION
  Report Type: Spontaneous
  Country: US (occurrence: US)
  Receive Date: 20250325
  Receipt Date: 20250325
  Transmission Date: 20250408
  Serious: Yes (Other)
  Sender: CHATTEM
  Company Number: US-OPELLA-2025OHG008128

PATIENT
  Sex: Female

DRUGS (1)
  1. DULCOLAX (BISACODYL) [Suspect]
     Active Substance: BISACODYL
     Indication: Product used for unknown indication
     Route: 048

REACTIONS (4)
  - Swollen tongue [Unknown]
  - Tongue discomfort [Unknown]
  - Wrong technique in product usage process [Unknown]
  - Wrong product administered [Unknown]
